FAERS Safety Report 24538025 (Version 1)
Quarter: 2024Q4

REPORT INFORMATION
  Report Type: Other
  Country: IT (occurrence: IT)
  Receive Date: 20241023
  Receipt Date: 20241023
  Transmission Date: 20250115
  Serious: Yes (Death)
  Sender: ANI
  Company Number: IT-ANIPHARMA-012594

PATIENT
  Age: 70 Year
  Sex: Male

DRUGS (1)
  1. FUROSEMIDE [Suspect]
     Active Substance: FUROSEMIDE
     Indication: Diuretic therapy

REACTIONS (3)
  - Drug ineffective [Fatal]
  - Hepatic function abnormal [Fatal]
  - Renal impairment [Fatal]
